FAERS Safety Report 4785380-X (Version None)
Quarter: 2005Q3

REPORT INFORMATION
  Report Type: 
  Country: None (occurrence: None)
  Receive Date: 20050929
  Receipt Date: 20050825
  Transmission Date: 20060218
  Serious: Yes (Death)
  Sender: FDA-Public Use
  Company Number: 217444

PATIENT
  Age: 75 Year
  Sex: Male

DRUGS (2)
  1. MABTHERA (RITUXIMAB) CONC FOR SOLUTION FOR INFUSION, 100MG [Suspect]
     Indication: ACUTE MYELOID LEUKAEMIA
     Dosage: INTRAVENOUS
     Route: 042
     Dates: start: 20040801, end: 20040801
  2. ENBREL [Suspect]
     Indication: OSTEOARTHROPATHY
     Dosage: 25 MG, 2/WEEK, SUBCUTANEOUS
     Route: 058
     Dates: start: 20040701, end: 20040801

REACTIONS (4)
  - ACUTE MYELOID LEUKAEMIA [None]
  - ANAPHYLACTIC SHOCK [None]
  - TUMOUR LYSIS SYNDROME [None]
  - URINARY TRACT INFECTION [None]
